FAERS Safety Report 11203761 (Version 2)
Quarter: 2015Q3

REPORT INFORMATION
  Report Type: Report from Study
  Country: PK (occurrence: PK)
  Receive Date: 20150619
  Receipt Date: 20150708
  Transmission Date: 20151125
  Serious: Yes (Death, Life-Threatening, Hospitalization, Other)
  Sender: FDA-Public Use
  Company Number: PK-INCYTE CORPORATION-2015IN001919

PATIENT
  Age: 44 Year
  Sex: Female
  Weight: 76 kg

DRUGS (1)
  1. JAKAFI [Suspect]
     Active Substance: RUXOLITINIB
     Indication: ESSENTIAL THROMBOCYTHAEMIA
     Dosage: 15 MG
     Route: 048
     Dates: start: 20141014, end: 20150406

REACTIONS (15)
  - Coma scale abnormal [Not Recovered/Not Resolved]
  - Rales [Not Recovered/Not Resolved]
  - Blast cell count increased [Recovering/Resolving]
  - Weight decreased [Recovering/Resolving]
  - Cardio-respiratory arrest [Fatal]
  - Hepatomegaly [Recovering/Resolving]
  - Pain [Recovering/Resolving]
  - Body temperature increased [Not Recovered/Not Resolved]
  - Pneumonia [Recovering/Resolving]
  - Nasal necrosis [Unknown]
  - Eastern Cooperative Oncology Group performance status worsened [Recovering/Resolving]
  - Haemoglobin decreased [Recovering/Resolving]
  - Blood pressure decreased [Not Recovered/Not Resolved]
  - Off label use [Unknown]
  - Pyrexia [Recovering/Resolving]

NARRATIVE: CASE EVENT DATE: 20150405
